FAERS Safety Report 18871335 (Version 3)
Quarter: 2021Q2

REPORT INFORMATION
  Report Type: Spontaneous
  Country: US (occurrence: US)
  Receive Date: 20210210
  Receipt Date: 20210409
  Transmission Date: 20210717
  Serious: Yes (Other)
  Sender: FDA-Public Use
  Company Number: US-AMGEN-USASP2021020111

PATIENT
  Sex: Female
  Weight: 76.19 kg

DRUGS (11)
  1. OLMESARTAN [Concomitant]
     Active Substance: OLMESARTAN
  2. TRIAMTERENE/HYDROCHLOROTHIAZIDE [Concomitant]
     Active Substance: HYDROCHLOROTHIAZIDE\TRIAMTERENE
  3. TRIAMTERENE. [Concomitant]
     Active Substance: TRIAMTERENE
  4. MOVANTIK [Concomitant]
     Active Substance: NALOXEGOL OXALATE
  5. FAMVIR [Concomitant]
     Active Substance: FAMCICLOVIR
     Dosage: 500 MILLIGRAM, Q8H
     Route: 048
  6. FLEXERIL [CEFIXIME] [Concomitant]
     Active Substance: CEFIXIME
     Dosage: 5 MILLIGRAM, Q8H
     Route: 048
  7. BENICAR [Concomitant]
     Active Substance: OLMESARTAN MEDOXOMIL
     Dosage: 40 MILLIGRAM, QD
     Route: 048
  8. FOSAMAX [Concomitant]
     Active Substance: ALENDRONATE SODIUM
     Dosage: UNK
  9. HYDROCHLORTHIAZID [Concomitant]
     Active Substance: HYDROCHLOROTHIAZIDE
  10. PROLIA [Suspect]
     Active Substance: DENOSUMAB
     Indication: OSTEOPOROSIS POSTMENOPAUSAL
     Dosage: 60 MILLIGRAM, Q6MO
     Route: 058
     Dates: start: 20201203
  11. NYSTATIN. [Concomitant]
     Active Substance: NYSTATIN

REACTIONS (10)
  - Rash erythematous [Recovering/Resolving]
  - Scab [Unknown]
  - Osteoarthritis [Unknown]
  - Iron deficiency anaemia [Unknown]
  - Tibia fracture [Unknown]
  - Ligament sprain [Unknown]
  - Spinal compression fracture [Unknown]
  - Musculoskeletal chest pain [Unknown]
  - Fibula fracture [Recovered/Resolved]
  - Thoracic vertebral fracture [Unknown]

NARRATIVE: CASE EVENT DATE: 2021
